FAERS Safety Report 9657872 (Version 2)
Quarter: 2013Q4

REPORT INFORMATION
  Report Type: Spontaneous
  Country: DK (occurrence: DK)
  Receive Date: 20131030
  Receipt Date: 20131111
  Transmission Date: 20140711
  Serious: Yes (Hospitalization, Disabling, Other)
  Sender: FDA-Public Use
  Company Number: DK-TEVA-440245ISR

PATIENT
  Age: 50 Year
  Sex: Male

DRUGS (1)
  1. SILDENAFIL [Suspect]
     Dosage: 100 MILLIGRAM DAILY;
     Route: 048

REACTIONS (5)
  - Priapism [Recovered/Resolved with Sequelae]
  - Thrombosis corpora cavernosa [Recovered/Resolved with Sequelae]
  - Self-medication [Unknown]
  - Intentional drug misuse [Unknown]
  - Erectile dysfunction [Unknown]
